FAERS Safety Report 19197205 (Version 2)
Quarter: 2021Q4

REPORT INFORMATION
  Report Type: Spontaneous
  Country: DE (occurrence: DE)
  Receive Date: 20210429
  Receipt Date: 20211006
  Transmission Date: 20220304
  Serious: Yes (Other)
  Sender: FDA-Public Use
  Company Number: NVSC2021DE092532

PATIENT
  Age: 68 Year
  Sex: Female

DRUGS (1)
  1. BEOVU [Suspect]
     Active Substance: BROLUCIZUMAB-DBLL
     Indication: Neovascular age-related macular degeneration
     Dosage: UNK (EVERY Q12W DOSING)
     Route: 031
     Dates: start: 20200410

REACTIONS (2)
  - Subretinal fluid [Unknown]
  - Retinal oedema [Unknown]
